FAERS Safety Report 17741470 (Version 3)
Quarter: 2020Q2

REPORT INFORMATION
  Report Type: Spontaneous
  Country: US (occurrence: US)
  Receive Date: 20200504
  Receipt Date: 20200622
  Transmission Date: 20200714
  Serious: No
  Sender: FDA-Public Use
  Company Number: US-PFIZER INC-2020178447

PATIENT
  Age: 54 Year
  Sex: Female

DRUGS (3)
  1. IBRANCE [Suspect]
     Active Substance: PALBOCICLIB
     Dosage: 125 MG, UNK
     Dates: start: 20200618
  2. IBRANCE [Suspect]
     Active Substance: PALBOCICLIB
     Dosage: 125 MG, UNK
     Dates: start: 20200401
  3. IBRANCE [Suspect]
     Active Substance: PALBOCICLIB
     Dosage: 125 MG, UNK
     Dates: start: 20200410

REACTIONS (7)
  - Diarrhoea [Unknown]
  - Eye pruritus [Unknown]
  - Fatigue [Unknown]
  - Rhinorrhoea [Unknown]
  - Epistaxis [Unknown]
  - Nasal crusting [Unknown]
  - Dry skin [Unknown]

NARRATIVE: CASE EVENT DATE: 2020
